FAERS Safety Report 22709438 (Version 3)
Quarter: 2023Q4

REPORT INFORMATION
  Report Type: Spontaneous
  Country: JP (occurrence: JP)
  Receive Date: 20230717
  Receipt Date: 20231002
  Transmission Date: 20240110
  Serious: Yes (Hospitalization, Other)
  Sender: FDA-Public Use
  Company Number: JP-MSD-M2023-27671

PATIENT
  Age: 89 Year
  Sex: Male
  Weight: 36 kg

DRUGS (1)
  1. LAGEVRIO [Suspect]
     Active Substance: MOLNUPIRAVIR
     Indication: COVID-19 treatment
     Dosage: 800 MILLIGRAM, BID
     Route: 048
     Dates: start: 20230704, end: 20230705

REACTIONS (10)
  - Oxygen saturation decreased [Recovered/Resolved]
  - Lacunar infarction [Unknown]
  - Schizophrenia [Unknown]
  - Hypokalaemia [Unknown]
  - Osteoarthritis [Unknown]
  - Hypertension [Unknown]
  - Gastritis [Unknown]
  - Dyschezia [Unknown]
  - Productive cough [Unknown]
  - Dysphagia [Unknown]

NARRATIVE: CASE EVENT DATE: 20230701
